FAERS Safety Report 16080179 (Version 1)
Quarter: 2019Q1

REPORT INFORMATION
  Report Type: Spontaneous
  Country: RU (occurrence: RU)
  Receive Date: 20190315
  Receipt Date: 20190315
  Transmission Date: 20190418
  Serious: Yes (Death, Hospitalization, Other)
  Sender: FDA-Public Use
  Company Number: PHHY2019RU059268

PATIENT
  Age: 26 Year
  Sex: Female

DRUGS (1)
  1. AMOKSIKLAV [Suspect]
     Active Substance: AMOXICILLIN\CLAVULANATE POTASSIUM
     Indication: PRODUCT USED FOR UNKNOWN INDICATION
     Route: 065

REACTIONS (13)
  - Leukaemoid reaction [Fatal]
  - Haemorrhagic vasculitis [Unknown]
  - Pruritus [Unknown]
  - Arthralgia [Unknown]
  - Tubulointerstitial nephritis [Unknown]
  - Neurological symptom [Fatal]
  - Coagulopathy [Fatal]
  - Rash papular [Recovering/Resolving]
  - Cardiac arrest [Fatal]
  - Multiple organ dysfunction syndrome [Fatal]
  - Leukocyturia [Unknown]
  - Still^s disease [Fatal]
  - Urticaria [Unknown]
